FAERS Safety Report 9081639 (Version 1)
Quarter: 2013Q1

REPORT INFORMATION
  Report Type: Report from Study
  Country: US (occurrence: US)
  Receive Date: 20130130
  Receipt Date: 20130130
  Transmission Date: 20140127
  Serious: No
  Sender: FDA-Public Use
  Company Number: US-ABBOTT-12P-163-0981702-00

PATIENT
  Age: 44 Year
  Sex: Female

DRUGS (5)
  1. HUMIRA [Suspect]
     Indication: PSORIASIS
     Dates: start: 20120531, end: 20120816
  2. PRISTIQ [Concomitant]
     Indication: DEPRESSION
  3. PENTASA [Concomitant]
     Indication: COLITIS ULCERATIVE
     Dosage: 4 TABLETS TWICE DAILY
  4. TRAZODONE [Concomitant]
     Indication: INSOMNIA
     Dosage: 1 AT NIGHT
  5. ZANTAC [Concomitant]
     Indication: NAUSEA
     Dosage: 1 AT NIGHT AND 1/2 TAB DURING THE DAY AS NEEDED

REACTIONS (3)
  - Throat irritation [Not Recovered/Not Resolved]
  - Sinusitis [Not Recovered/Not Resolved]
  - Nasal discomfort [Not Recovered/Not Resolved]
